FAERS Safety Report 21585334 (Version 4)
Quarter: 2022Q4

REPORT INFORMATION
  Report Type: Spontaneous
  Country: US (occurrence: US)
  Receive Date: 20221111
  Receipt Date: 20221117
  Transmission Date: 20230113
  Serious: No
  Sender: FDA-Public Use
  Company Number: US-PFIZER INC-2018485140

PATIENT
  Age: 34 Year
  Sex: Female
  Weight: 66.7 kg

DRUGS (7)
  1. RAPAMUNE [Suspect]
     Active Substance: SIROLIMUS
     Indication: Lung transplant
     Dosage: 5 MG, DAILY
     Route: 048
  2. RAPAMUNE [Suspect]
     Active Substance: SIROLIMUS
     Indication: Immunosuppressant drug therapy
     Dosage: 6 MG, DAILY (2 MG 90 DAY SUPPLY TAKE 6MG PO DAILY QUANTITY)
     Route: 048
  3. RAPAMUNE [Suspect]
     Active Substance: SIROLIMUS
     Indication: Lung transplant
     Dosage: 7 MG, 1X/DAY (EVERY MORNING)
     Route: 048
  4. RAPAMUNE [Suspect]
     Active Substance: SIROLIMUS
     Dosage: 8 MG, 1X/DAY (8 EVERY MORNING)
     Route: 048
  5. RAPAMUNE [Suspect]
     Active Substance: SIROLIMUS
     Dosage: 9 MG, DAILY
     Route: 048
  6. RAPAMUNE [Suspect]
     Active Substance: SIROLIMUS
     Dosage: 7 MG, 1X/DAY
     Route: 048
     Dates: start: 2015
  7. RAPAMUNE [Suspect]
     Active Substance: SIROLIMUS
     Dosage: 7 MG (14 TABLETS OF 0.5 MG), 1X/DAY EVERY MORNING
     Route: 048

REACTIONS (5)
  - Product dose omission issue [Unknown]
  - Off label use [Unknown]
  - Product supply issue [Unknown]
  - Frustration tolerance decreased [Unknown]
  - Anxiety [Unknown]

NARRATIVE: CASE EVENT DATE: 20220101
